FAERS Safety Report 16621551 (Version 1)
Quarter: 2019Q3

REPORT INFORMATION
  Report Type: Spontaneous
  Country: ES (occurrence: ES)
  Receive Date: 20190723
  Receipt Date: 20190723
  Transmission Date: 20191004
  Serious: Yes (Other)
  Sender: FDA-Public Use
  Company Number: ES-PROGENICS PHARMACEUTICALS-2019PGE00001

PATIENT

DRUGS (7)
  1. POTASSIUM IODIDE. [Concomitant]
     Active Substance: POTASSIUM IODIDE
     Dosage: ^3 DAYS BEFORE TO 9 DAYS AFTER TREATMENT^
     Route: 065
  2. IOBENGUANE (131 I) [Suspect]
     Active Substance: IOBENGUANE I-131
     Indication: NEUROBLASTOMA
     Dosage: 444 MBQ/KG (12 MCI/KG), DILUTED TO 50 ML AND INFUSED AS SOON AS POSSIBLE OVER 30 MIN (DAY 1)
     Route: 065
  3. TOPOTECAN [Suspect]
     Active Substance: TOPOTECAN HYDROCHLORIDE
     Indication: NEUROBLASTOMA
     Dosage: 0.7 MG/M2, INFUSED OVER 30 MIN BEFORE 131I-MIBG, THEN DAILY FOR 4 DAYS (DAYS 1 THROUGH 5)
     Route: 065
  4. IOBENGUANE (131 I) [Suspect]
     Active Substance: IOBENGUANE I-131
     Dosage: CALCULATED DOSE, DILUTED TO 50 ML AND INFUSED AS SOON AS POSSIBLE OVER 30 MIN (DAY 15)
     Route: 065
  5. TOPOTECAN [Suspect]
     Active Substance: TOPOTECAN HYDROCHLORIDE
     Dosage: 0.7 MG/M2, INFUSED OVER 30 MIN BEFORE 131I-MIBG, THEN DAILY FOR 4 DAYS (DAYS 15 THROUGH 19)
     Route: 065
  6. 0.9% SALINE [Concomitant]
     Dosage: 2.0 L/1.73 M2/24 H FOR 4 H BEFORE TREATMENT
     Route: 065
  7. ONDANSETRON [Concomitant]
     Active Substance: ONDANSETRON
     Dosage: 20 ?G/KG, 2X/DAY, (PRETREATMENT)
     Route: 065

REACTIONS (1)
  - Thyroid cancer [Unknown]
